FAERS Safety Report 9002405 (Version 1)
Quarter: 2012Q4

REPORT INFORMATION
  Report Type: Spontaneous
  Country: NL (occurrence: None)
  Receive Date: 20121207
  Receipt Date: 20121207
  Transmission Date: 20130627
  Serious: Yes (Hospitalization)
  Sender: FDA-Public Use
  Company Number: 2012ST000154

PATIENT
  Age: 58 Year
  Sex: Male

DRUGS (3)
  1. OMEPRAZOLE [Suspect]
     Indication: EPIGASTRIC PAIN
     Route: 048
  2. CAPTOPRIL [Concomitant]
  3. SIMVASTATIN [Concomitant]

REACTIONS (6)
  - Hypomagnesaemia [None]
  - Loss of consciousness [None]
  - Convulsion [None]
  - Muscle spasms [None]
  - Hypocalcaemia [None]
  - Hypokalaemia [None]
